FAERS Safety Report 8495664-X (Version None)
Quarter: 2012Q3

REPORT INFORMATION
  Report Type: 
  Country: None (occurrence: None)
  Receive Date: 20120709
  Receipt Date: 20120705
  Transmission Date: 20120928
  Serious: No
  Sender: FDA-Public Use
  Company Number: US-TEVA-345692USA

PATIENT
  Sex: Female
  Weight: 49.94 kg

DRUGS (2)
  1. PLAN B ONE-STEP [Suspect]
     Indication: POST COITAL CONTRACEPTION
     Dosage: 1.5 MILLIGRAM;
     Route: 048
     Dates: start: 20120616, end: 20120616
  2. TENSION HEADACHE OTC [Concomitant]
     Indication: HEADACHE
     Route: 048
     Dates: start: 20100101

REACTIONS (6)
  - OFF LABEL USE [None]
  - PELVIC PAIN [None]
  - INAPPROPRIATE SCHEDULE OF DRUG ADMINISTRATION [None]
  - MENSTRUATION DELAYED [None]
  - VAGINAL HAEMORRHAGE [None]
  - PREGNANCY [None]
